FAERS Safety Report 8947179 (Version 1)
Quarter: 2012Q4

REPORT INFORMATION
  Report Type: 
  Country: US (occurrence: US)
  Receive Date: 20121205
  Receipt Date: 20121205
  Transmission Date: 20130627
  Serious: Yes (Other)
  Sender: FDA-Public Use
  Company Number: US-JNJFOC-20121200738

PATIENT
  Age: 43 Year
  Sex: Male
  Weight: 123.38 kg

DRUGS (2)
  1. ROGAINE FOR MEN EXTRA STRENGTH FOAM [Suspect]
     Route: 061
  2. ROGAINE FOR MEN EXTRA STRENGTH FOAM [Suspect]
     Indication: ALOPECIA
     Dosage: one pump
     Route: 061
     Dates: start: 20120801, end: 20121113

REACTIONS (4)
  - Application site dermatitis [Not Recovered/Not Resolved]
  - Rash macular [Not Recovered/Not Resolved]
  - Application site exfoliation [Not Recovered/Not Resolved]
  - Accidental exposure to product [Unknown]
